FAERS Safety Report 21907854 (Version 1)
Quarter: 2023Q1

REPORT INFORMATION
  Report Type: Report from Study
  Country: ES (occurrence: ES)
  Receive Date: 20230125
  Receipt Date: 20230125
  Transmission Date: 20230418
  Serious: Yes (Hospitalization, Other)
  Sender: FDA-Public Use
  Company Number: ES-GLAXOSMITHKLINE-ES2021EME061139

PATIENT

DRUGS (2)
  1. BELIMUMAB [Suspect]
     Active Substance: BELIMUMAB
     Indication: Systemic lupus erythematosus
     Dosage: 200 MG
     Dates: start: 20210223
  2. BELIMUMAB [Suspect]
     Active Substance: BELIMUMAB
     Dosage: 200 MG
     Dates: start: 20210309

REACTIONS (8)
  - Facial paralysis [Recovered/Resolved]
  - Pneumonia [Recovered/Resolved]
  - Hypoxia [Recovered/Resolved]
  - Salivary hypersecretion [Recovered/Resolved]
  - Nausea [Recovered/Resolved]
  - Hunger [Recovered/Resolved]
  - Pyrexia [Recovered/Resolved]
  - Cough [Recovered/Resolved]

NARRATIVE: CASE EVENT DATE: 20210309
